FAERS Safety Report 6817025-9 (Version None)
Quarter: 2010Q3

REPORT INFORMATION
  Report Type: 
  Country: None (occurrence: None)
  Receive Date: 20100706
  Receipt Date: 20100622
  Transmission Date: 20110219
  Serious: Yes (Death, Other)
  Sender: FDA-Public Use
  Company Number: US-JNJFOC-20100607738

PATIENT
  Age: 52 Year
  Sex: Male

DRUGS (8)
  1. INFLIXIMAB, RECOMBINANT [Suspect]
     Indication: COLITIS
     Route: 042
  2. INFLIXIMAB, RECOMBINANT [Suspect]
     Route: 042
  3. INFLIXIMAB, RECOMBINANT [Suspect]
     Route: 042
  4. TACROLIMUS [Concomitant]
     Indication: COLITIS
     Route: 065
  5. RAPAMYCIN [Concomitant]
     Indication: COLITIS
     Route: 065
  6. PREDNISONE TAB [Concomitant]
     Indication: COLITIS
     Route: 065
  7. PREDNISONE TAB [Concomitant]
     Route: 065
  8. IPILIMUMAB [Concomitant]
     Indication: PROSTATE CANCER
     Route: 042

REACTIONS (2)
  - ASPERGILLOSIS [None]
  - DRUG INEFFECTIVE [None]
